FAERS Safety Report 8131564-2 (Version None)
Quarter: 2012Q1

REPORT INFORMATION
  Report Type: 
  Country: None (occurrence: None)
  Receive Date: 20120213
  Receipt Date: 20120208
  Transmission Date: 20120608
  Serious: Yes (Hospitalization)
  Sender: FDA-Public Use
  Company Number: US-SHIRE-ALL1-2012-00779

PATIENT
  Sex: Male
  Weight: 70.295 kg

DRUGS (2)
  1. LIALDA [Suspect]
     Indication: PRODUCT USED FOR UNKNOWN INDICATION
     Dosage: 1.2 G, 2X/DAY:BID
     Route: 048
     Dates: start: 20110101, end: 20111101
  2. LIALDA [Suspect]
     Dosage: 2.4 G, 2X/DAY:BID
     Route: 048
     Dates: start: 20111101

REACTIONS (3)
  - INAPPROPRIATE SCHEDULE OF DRUG ADMINISTRATION [None]
  - ADVERSE EVENT [None]
  - CONDITION AGGRAVATED [None]
